FAERS Safety Report 7087189-3 (Version None)
Quarter: 2010Q4

REPORT INFORMATION
  Report Type: 
  Country: None (occurrence: None)
  Receive Date: 20101106
  Receipt Date: 20101102
  Transmission Date: 20110411
  Serious: No
  Sender: FDA-Public Use
  Company Number: US-WYE-H18503910

PATIENT
  Age: 60 Year
  Sex: Male
  Weight: 72.64 kg

DRUGS (3)
  1. ADVIL COLD AND SINUS [Suspect]
     Indication: NASOPHARYNGITIS
     Dosage: ONE TABLET THREE TIMES A DAY
     Dates: start: 20101022, end: 20101001
  2. ADVIL COLD AND SINUS [Suspect]
     Dosage: ONE TABLET TWICE A DAY
     Route: 048
     Dates: start: 20101001, end: 20101101
  3. IBUPROFEN [Concomitant]

REACTIONS (1)
  - DRUG EFFECT DECREASED [None]
